FAERS Safety Report 9233779 (Version 2)
Quarter: 2013Q2

REPORT INFORMATION
  Report Type: Spontaneous
  Country: US (occurrence: US)
  Receive Date: 20121031
  Receipt Date: 20130107
  Transmission Date: 20140414
  Serious: Yes (Other)
  Sender: FDA-Public Use
  Company Number: PHEH2012US013658

PATIENT
  Age: 48 Year
  Sex: Female
  Weight: 64 kg

DRUGS (1)
  1. GILENYA [Suspect]
     Indication: MULTIPLE SCLEROSIS
     Route: 048
     Dates: start: 20120110

REACTIONS (6)
  - Multiple sclerosis relapse [None]
  - Gait disturbance [None]
  - Balance disorder [None]
  - Burning sensation [None]
  - Hypoaesthesia [None]
  - Chest discomfort [None]
